FAERS Safety Report 26168749 (Version 1)
Quarter: 2025Q4

REPORT INFORMATION
  Report Type: Spontaneous
  Country: US (occurrence: US)
  Receive Date: 20251217
  Receipt Date: 20251217
  Transmission Date: 20260117
  Serious: No
  Sender: Kenvue
  Company Number: US-KENVUE-20251108268

PATIENT
  Sex: Female

DRUGS (1)
  1. IMODIUM [Suspect]
     Active Substance: LOPERAMIDE HYDROCHLORIDE
     Indication: Post procedural diarrhoea
     Dosage: SIX TO NINE TABLETS A DAY, THRICE A DAY
     Route: 065
     Dates: start: 2005

REACTIONS (2)
  - Overdose [Unknown]
  - Incorrect product administration duration [Unknown]

NARRATIVE: CASE EVENT DATE: 20050101
